FAERS Safety Report 13415191 (Version 2)
Quarter: 2017Q2

REPORT INFORMATION
  Report Type: Report from Study
  Country: US (occurrence: US)
  Receive Date: 20170406
  Receipt Date: 20170418
  Transmission Date: 20170830
  Serious: Yes (Hospitalization)
  Sender: FDA-Public Use
  Company Number: US-GILEAD-2017-0264692

PATIENT
  Age: 48 Year
  Sex: Female
  Weight: 164 kg

DRUGS (18)
  1. LASIX [Concomitant]
     Active Substance: FUROSEMIDE
  2. PRINIVIL [Concomitant]
     Active Substance: LISINOPRIL
  3. GLUCOPHAGE [Concomitant]
     Active Substance: METFORMIN HYDROCHLORIDE
  4. ULTRAM [Concomitant]
     Active Substance: TRAMADOL HYDROCHLORIDE
  5. AMBRISENTAN [Suspect]
     Active Substance: AMBRISENTAN
     Indication: PULMONARY HYPERTENSION
     Dosage: 10 MG, QD
     Route: 065
     Dates: start: 20071126
  6. AMBIEN [Concomitant]
     Active Substance: ZOLPIDEM TARTRATE
  7. HARVONI [Concomitant]
     Active Substance: LEDIPASVIR\SOFOSBUVIR
  8. KLOR-CON [Concomitant]
     Active Substance: POTASSIUM CHLORIDE
  9. ADVIL (MEFENAMIC ACID) [Concomitant]
     Active Substance: MEFENAMIC ACID
  10. TOPROL XL [Concomitant]
     Active Substance: METOPROLOL SUCCINATE
  11. K-DUR [Concomitant]
     Active Substance: POTASSIUM CHLORIDE
  12. AMBRISENTAN [Suspect]
     Active Substance: AMBRISENTAN
     Indication: HIV INFECTION
  13. NEXIUM [Concomitant]
     Active Substance: ESOMEPRAZOLE MAGNESIUM
  14. NIFEDICAL XL [Concomitant]
     Active Substance: NIFEDIPINE
  15. TRIUMEQ [Concomitant]
     Active Substance: ABACAVIR SULFATE\DOLUTEGRAVIR SODIUM\LAMIVUDINE
  16. ZESTRIL [Concomitant]
     Active Substance: LISINOPRIL
  17. MOTRIN [Concomitant]
     Active Substance: IBUPROFEN
  18. LOPRESSOR [Concomitant]
     Active Substance: METOPROLOL TARTRATE

REACTIONS (1)
  - Asthma [Recovered/Resolved]

NARRATIVE: CASE EVENT DATE: 20170403
